FAERS Safety Report 12083763 (Version 1)
Quarter: 2016Q1

REPORT INFORMATION
  Report Type: Spontaneous
  Country: US (occurrence: US)
  Receive Date: 20160217
  Receipt Date: 20160217
  Transmission Date: 20160526
  Serious: No
  Sender: FDA-Public Use
  Company Number: US-BAUSCH-BL-2015-014101

PATIENT
  Sex: Female

DRUGS (2)
  1. TARGRETIN [Suspect]
     Active Substance: BEXAROTENE
     Dosage: INCRESED FROM 2 PILLS TO 3 PILLS
     Route: 048
  2. TARGRETIN [Suspect]
     Active Substance: BEXAROTENE
     Indication: LYMPHOMA
     Route: 048

REACTIONS (5)
  - Blood triglycerides increased [Recovered/Resolved]
  - Malaise [Not Recovered/Not Resolved]
  - Swelling [Not Recovered/Not Resolved]
  - Dyspepsia [Not Recovered/Not Resolved]
  - Rash [Not Recovered/Not Resolved]

NARRATIVE: CASE EVENT DATE: 201502
